FAERS Safety Report 5646480-5 (Version None)
Quarter: 2008Q1

REPORT INFORMATION
  Report Type: 
  Country: None (occurrence: None)
  Receive Date: 20080303
  Receipt Date: 20080227
  Transmission Date: 20080703
  Serious: Yes (Other)
  Sender: FDA-Public Use
  Company Number: DE-WYE-G01153908

PATIENT
  Sex: Female

DRUGS (2)
  1. TREVILOR RETARD [Suspect]
     Indication: DEPRESSION
     Dosage: UNKNOWN
     Route: 048
     Dates: start: 20070601, end: 20071001
  2. TREVILOR RETARD [Suspect]
     Route: 048
     Dates: start: 20071001

REACTIONS (2)
  - BLINDNESS [None]
  - THROMBOSIS [None]
